FAERS Safety Report 19391631 (Version 1)
Quarter: 2021Q2

REPORT INFORMATION
  Report Type: Spontaneous
  Country: IT (occurrence: IT)
  Receive Date: 20210608
  Receipt Date: 20210608
  Transmission Date: 20210717
  Serious: Yes (Hospitalization)
  Sender: FDA-Public Use
  Company Number: IT-PFIZER INC-2021637749

PATIENT
  Age: 58 Year
  Sex: Female

DRUGS (2)
  1. COMIRNATY [Concomitant]
     Active Substance: TOZINAMERAN
     Indication: COVID-19 IMMUNISATION
     Dosage: UNKNOWN, SINGLE DOSE
     Dates: start: 20210511, end: 20210511
  2. CELEBREX [Suspect]
     Active Substance: CELECOXIB
     Dosage: UNK
     Dates: start: 20210514, end: 20210514

REACTIONS (6)
  - Angioedema [Recovered/Resolved]
  - Blood pressure increased [Unknown]
  - Heart rate increased [Unknown]
  - Hypersensitivity [Recovered/Resolved]
  - Pruritus [Recovered/Resolved]
  - Urticaria vesiculosa [Recovered/Resolved]

NARRATIVE: CASE EVENT DATE: 20210514
